FAERS Safety Report 4890614-7 (Version None)
Quarter: 2006Q1

REPORT INFORMATION
  Report Type: 
  Country: None (occurrence: None)
  Receive Date: 20060125
  Receipt Date: 20060116
  Transmission Date: 20060701
  Serious: Yes (Hospitalization)
  Sender: FDA-Public Use
  Company Number: PHRM2006FR00572

PATIENT
  Age: 33 Year
  Sex: Female

DRUGS (2)
  1. SYNTOCINON [Suspect]
     Indication: CAESAREAN SECTION
     Dosage: 5 IU/ML, UNK
     Dates: start: 20051228, end: 20051230
  2. BROMOKIN [Concomitant]
     Route: 048

REACTIONS (2)
  - CONVULSION [None]
  - HYPONATRAEMIA [None]
